FAERS Safety Report 6617375-5 (Version None)
Quarter: 2010Q1

REPORT INFORMATION
  Report Type: 
  Country: None (occurrence: None)
  Receive Date: 20100307
  Receipt Date: 20100217
  Transmission Date: 20100710
  Serious: No
  Sender: FDA-Public Use
  Company Number: US-BAYER-201011928BCC

PATIENT
  Age: 12 Year
  Sex: Female
  Weight: 33 kg

DRUGS (1)
  1. ALEVE (CAPLET) [Suspect]
     Indication: ARTHRALGIA
     Route: 048
     Dates: start: 20100214

REACTIONS (4)
  - DYSPHAGIA [None]
  - EATING DISORDER [None]
  - FOREIGN BODY [None]
  - THROAT IRRITATION [None]
